FAERS Safety Report 13253213 (Version 5)
Quarter: 2019Q3

REPORT INFORMATION
  Report Type: Spontaneous
  Country: DE (occurrence: DE)
  Receive Date: 20170220
  Receipt Date: 20190928
  Transmission Date: 20191004
  Serious: Yes (Hospitalization, Other)
  Sender: FDA-Public Use
  Company Number: DE-BRISTOL-MYERS SQUIBB COMPANY-BMS-2017-012946

PATIENT
  Age: 58 Year
  Sex: Male
  Weight: 100 kg

DRUGS (2)
  1. OPDIVO [Suspect]
     Active Substance: NIVOLUMAB
     Indication: MALIGNANT MELANOMA
     Dosage: 1 MG/KG, UNK
     Route: 065
     Dates: start: 20160811, end: 20160901
  2. YERVOY [Suspect]
     Active Substance: IPILIMUMAB
     Indication: MALIGNANT MELANOMA
     Dosage: 3 MILLIGRAM/KILOGRAM
     Route: 065
     Dates: start: 20160811, end: 20160901

REACTIONS (31)
  - Fall [Unknown]
  - Pubis fracture [Unknown]
  - Pruritus [Unknown]
  - Agranulocytosis [Unknown]
  - Dizziness [Recovered/Resolved]
  - Multiple fractures [Unknown]
  - Therapeutic procedure [Unknown]
  - Hot flush [Unknown]
  - Colitis [Unknown]
  - Neutropenia [Recovered/Resolved]
  - Mood altered [Unknown]
  - Night sweats [Unknown]
  - Oral disorder [Unknown]
  - Hypotension [Recovered/Resolved]
  - General physical health deterioration [Recovered/Resolved]
  - Acetabulum fracture [Unknown]
  - Mucosal inflammation [Recovered/Resolved]
  - Diarrhoea [Recovered/Resolved]
  - Adrenal insufficiency [Unknown]
  - Papule [Unknown]
  - Body temperature increased [Unknown]
  - Skin plaque [Unknown]
  - Macule [Unknown]
  - Ear pain [Recovered/Resolved]
  - Lymphoedema [Not Recovered/Not Resolved]
  - Adrenocortical insufficiency acute [Unknown]
  - Leukopenia [Unknown]
  - Rash [Unknown]
  - Pain [Unknown]
  - Erythema [Unknown]
  - Stomatitis [Unknown]

NARRATIVE: CASE EVENT DATE: 20160818
